FAERS Safety Report 24232476 (Version 1)
Quarter: 2024Q3

REPORT INFORMATION
  Report Type: Spontaneous
  Country: US (occurrence: US)
  Receive Date: 20240821
  Receipt Date: 20240821
  Transmission Date: 20241017
  Serious: No
  Sender: BRECKENRIDGE
  Company Number: US-Breckenridge Pharmaceutical, Inc.-2160670

PATIENT
  Age: 20 Year
  Sex: Male
  Weight: 32.727 kg

DRUGS (5)
  1. OXCARBAZEPINE [Suspect]
     Active Substance: OXCARBAZEPINE
     Indication: Seizure
     Route: 048
  2. CLONAZEPAM [Concomitant]
     Active Substance: CLONAZEPAM
     Route: 048
  3. PEPCID [Concomitant]
     Active Substance: FAMOTIDINE
  4. BANZEL [Concomitant]
     Active Substance: RUFINAMIDE
     Route: 048
  5. PHENOBARBITAL [Concomitant]
     Active Substance: PHENOBARBITAL
     Route: 048

REACTIONS (2)
  - Constipation [Unknown]
  - Urinary hesitation [Recovering/Resolving]
